FAERS Safety Report 12933036 (Version 1)
Quarter: 2016Q4

REPORT INFORMATION
  Report Type: Spontaneous
  Country: CN (occurrence: CN)
  Receive Date: 20161111
  Receipt Date: 20161111
  Transmission Date: 20170207
  Serious: Yes (Other)
  Sender: FDA-Public Use
  Company Number: CN-PFIZER INC-2016518116

PATIENT
  Age: 62 Year
  Sex: Male
  Weight: 79 kg

DRUGS (1)
  1. SOLU-MEDROL [Suspect]
     Active Substance: METHYLPREDNISOLONE SODIUM SUCCINATE
     Indication: IMMUNOSUPPRESSION
     Dosage: 40 MG, 1X/DAY
     Route: 041
     Dates: start: 20160920, end: 20160922

REACTIONS (6)
  - Blood pressure increased [Recovering/Resolving]
  - Feeling abnormal [Recovering/Resolving]
  - Chest discomfort [Recovering/Resolving]
  - Supraventricular tachycardia [Recovering/Resolving]
  - Vomiting [Recovering/Resolving]
  - Phaeochromocytoma [Recovering/Resolving]

NARRATIVE: CASE EVENT DATE: 20160920
